FAERS Safety Report 9901552 (Version 1)
Quarter: 2014Q1

REPORT INFORMATION
  Report Type: Report from Study
  Country: PT (occurrence: PT)
  Receive Date: 20140217
  Receipt Date: 20140217
  Transmission Date: 20141002
  Serious: Yes (Other)
  Sender: FDA-Public Use
  Company Number: PT-BAYER-2014-019331

PATIENT
  Age: 33 Year
  Sex: Female

DRUGS (2)
  1. BETAFERON [Suspect]
     Indication: RELAPSING-REMITTING MULTIPLE SCLEROSIS
     Dosage: 250 ?G, QOD
     Route: 058
     Dates: start: 20131122
  2. PARACETAMOL [Concomitant]
     Dosage: 1 G, UNK

REACTIONS (4)
  - Paraparesis [Not Recovered/Not Resolved]
  - Hypertonia [Not Recovered/Not Resolved]
  - Pain in extremity [Not Recovered/Not Resolved]
  - Gait spastic [Not Recovered/Not Resolved]
